FAERS Safety Report 5353930-0 (Version None)
Quarter: 2007Q2

REPORT INFORMATION
  Report Type: 
  Country: None (occurrence: None)
  Receive Date: 20070608
  Receipt Date: 20070608
  Transmission Date: 20071010
  Serious: Yes (Hospitalization)
  Sender: FDA-Public Use
  Company Number: None

PATIENT
  Age: 68 Year
  Sex: Male
  Weight: 109.8 kg

DRUGS (9)
  1. FELODIPINE [Suspect]
     Indication: HYPERTENSION
     Dosage: 2.5MG DAILY PO
     Route: 048
     Dates: start: 20060515, end: 20060915
  2. GLIPIZIDE [Concomitant]
  3. NORSKE OINTMENT [Concomitant]
  4. FELODIPINE [Concomitant]
  5. LOSARTAN [Concomitant]
  6. LORATADINE [Concomitant]
  7. ATENOLOL [Concomitant]
  8. SIMVASTATIN [Concomitant]
  9. FLUNISOLIDE [Concomitant]

REACTIONS (1)
  - OEDEMA PERIPHERAL [None]
